FAERS Safety Report 9917560 (Version 1)
Quarter: 2014Q1

REPORT INFORMATION
  Report Type: Spontaneous
  Country: IT (occurrence: IT)
  Receive Date: 20140221
  Receipt Date: 20140221
  Transmission Date: 20141002
  Serious: Yes (Other)
  Sender: FDA-Public Use
  Company Number: PHHY2014IT020376

PATIENT
  Age: 68 Year
  Sex: Male

DRUGS (7)
  1. ACETYLSALICYLIC ACID [Suspect]
     Dosage: 100 MG, QD
     Route: 048
     Dates: start: 20130101, end: 20131110
  2. CLEXANE T [Suspect]
     Indication: ATRIAL FIBRILLATION
     Dosage: 12 IU, QD
     Route: 058
     Dates: start: 20131030, end: 20131110
  3. COUMADIN [Suspect]
     Indication: ATRIAL FIBRILLATION
     Dosage: 5 MG, UNK
     Dates: start: 20131105, end: 20131110
  4. CORATEG [Concomitant]
  5. FULCRO [Concomitant]
     Dosage: 200 MG, UNK
  6. BISOPROLOL [Concomitant]
     Dosage: 2.5 MG, UNK
  7. METFORMIN [Concomitant]

REACTIONS (2)
  - Haematuria [Recovering/Resolving]
  - Epistaxis [Recovering/Resolving]
